FAERS Safety Report 4872735-8 (Version None)
Quarter: 2006Q1

REPORT INFORMATION
  Report Type: 
  Country: None (occurrence: None)
  Receive Date: 20060103
  Receipt Date: 20051221
  Transmission Date: 20060701
  Serious: Yes (Death)
  Sender: FDA-Public Use
  Company Number: USA040978988

PATIENT
  Age: 85 Year
  Sex: Female

DRUGS (6)
  1. ZYPREXA [Suspect]
     Dosage: 5 MG, DAILY (1/D), ORAL
     Route: 048
     Dates: start: 20031201
  2. ARICEPT [Concomitant]
  3. CELEXA [Concomitant]
  4. FOLIC ACID [Concomitant]
  5. NAMENDA [Concomitant]
  6. MEGASTROL (MEGESTROL) [Concomitant]

REACTIONS (13)
  - ANOREXIA [None]
  - ANXIETY [None]
  - CEREBROVASCULAR ACCIDENT [None]
  - FAECAL INCONTINENCE [None]
  - FALL [None]
  - GENERAL NUTRITION DISORDER [None]
  - HALLUCINATION [None]
  - HYPERSOMNIA [None]
  - PAIN [None]
  - RASH MACULAR [None]
  - THINKING ABNORMAL [None]
  - WEIGHT DECREASED [None]
  - YELLOW SKIN [None]
